FAERS Safety Report 22611346 (Version 1)
Quarter: 2023Q2

REPORT INFORMATION
  Report Type: Report from Study
  Country: US (occurrence: US)
  Receive Date: 20230616
  Receipt Date: 20230616
  Transmission Date: 20230722
  Serious: Yes (Death)
  Sender: FDA-Public Use
  Company Number: US-PFIZER INC-PV202300105068

PATIENT

DRUGS (2)
  1. CYTARABINE [Suspect]
     Active Substance: CYTARABINE
     Indication: Acute myeloid leukaemia
     Dosage: 1 G/M 2 GIVEN AS A 2-HOUR INFUSION ON DAYS 1 TO 5
  2. UZANSERTIB [Suspect]
     Active Substance: UZANSERTIB
     Indication: Acute myeloid leukaemia
     Dosage: 50 MG, 2X/DAY
     Route: 048

REACTIONS (1)
  - Sepsis [Fatal]
